FAERS Safety Report 7148989-4 (Version None)
Quarter: 2010Q4

REPORT INFORMATION
  Report Type: 
  Country: None (occurrence: None)
  Receive Date: 20101209
  Receipt Date: 20101206
  Transmission Date: 20110411
  Serious: Yes (Hospitalization)
  Sender: FDA-Public Use
  Company Number: JP-PFIZER INC-2010165203

PATIENT
  Age: 52 Year
  Sex: Female

DRUGS (3)
  1. NORVASC [Suspect]
     Route: 048
  2. CARDENALIN [Suspect]
     Dosage: UNK
     Route: 048
     Dates: start: 20081001
  3. BLOPRESS [Concomitant]

REACTIONS (1)
  - HEPATITIS FULMINANT [None]
